FAERS Safety Report 7660514-8 (Version None)
Quarter: 2011Q3

REPORT INFORMATION
  Report Type: 
  Country: None (occurrence: None)
  Receive Date: 20110805
  Receipt Date: 20110728
  Transmission Date: 20111222
  Serious: Yes (Disabling, Other)
  Sender: FDA-Public Use
  Company Number: US-MERCK-1104USA01933

PATIENT
  Age: 63 Year
  Sex: Female
  Weight: 84 kg

DRUGS (6)
  1. FOSAMAX [Suspect]
     Indication: OSTEOPOROSIS
     Route: 048
     Dates: start: 20020726, end: 20101102
  2. FOSAMAX [Suspect]
     Indication: OSTEOPENIA
     Route: 048
     Dates: start: 20020726, end: 20101102
  3. FOSAMAX [Suspect]
     Route: 048
     Dates: start: 20100417
  4. ALENDRONATE SODIUM [Suspect]
     Indication: OSTEOPOROSIS
     Route: 048
     Dates: start: 20080805, end: 20100223
  5. FOSAMAX [Suspect]
     Route: 048
     Dates: start: 20100417
  6. ALENDRONATE SODIUM [Suspect]
     Indication: OSTEOPENIA
     Route: 048
     Dates: start: 20080805, end: 20100223

REACTIONS (23)
  - FEMUR FRACTURE [None]
  - PELVIC FRACTURE [None]
  - ANXIETY [None]
  - HAEMATURIA [None]
  - TOOTH DISORDER [None]
  - RENAL FUNCTION TEST ABNORMAL [None]
  - FIBROMYALGIA [None]
  - SARCOIDOSIS [None]
  - HYPOACUSIS [None]
  - FALL [None]
  - OSTEOGENESIS IMPERFECTA [None]
  - DEPRESSION [None]
  - BLOOD GLUCOSE INCREASED [None]
  - MITRAL VALVE PROLAPSE [None]
  - LOW TURNOVER OSTEOPATHY [None]
  - VIITH NERVE PARALYSIS [None]
  - CARPAL TUNNEL SYNDROME [None]
  - GASTROINTESTINAL DISORDER [None]
  - BLOOD CHOLESTEROL INCREASED [None]
  - CYSTOCELE [None]
  - DEEP VEIN THROMBOSIS [None]
  - GAMMA-GLUTAMYLTRANSFERASE INCREASED [None]
  - VAGINAL DISCHARGE [None]
